FAERS Safety Report 19984155 (Version 1)
Quarter: 2021Q4

REPORT INFORMATION
  Report Type: Spontaneous
  Country: US (occurrence: US)
  Receive Date: 20211022
  Receipt Date: 20211022
  Transmission Date: 20220303
  Serious: Yes (Death)
  Sender: FDA-Public Use
  Company Number: US-CELGENE-USA-20211006087

PATIENT
  Age: 48 Year
  Sex: Male
  Weight: 81.72 kg

DRUGS (1)
  1. THALOMID [Suspect]
     Active Substance: THALIDOMIDE
     Indication: Soft tissue sarcoma
     Dosage: 50 MILLIGRAM
     Route: 048
     Dates: start: 19991014, end: 200002

REACTIONS (1)
  - Death [Fatal]

NARRATIVE: CASE EVENT DATE: 20000225
